FAERS Safety Report 8007964-8 (Version None)
Quarter: 2011Q4

REPORT INFORMATION
  Report Type: 
  Country: None (occurrence: None)
  Receive Date: 20111227
  Receipt Date: 20111212
  Transmission Date: 20120403
  Serious: Yes (Other)
  Sender: FDA-Public Use
  Company Number: PHFR2011GB01814

PATIENT
  Sex: Male

DRUGS (9)
  1. PIPORTIL DEPOT [Concomitant]
  2. CLOZARIL [Suspect]
     Route: 065
     Dates: start: 20050101, end: 20101001
  3. AMISULPRIDE [Suspect]
     Dosage: 200 MG, QD
     Route: 065
  4. QUETIAPINE [Concomitant]
  5. HALOPERIDOL [Concomitant]
     Dosage: 10 MG, UNK
     Route: 030
  6. THIORIDAZINE HCL [Concomitant]
  7. MIDAZOLAM [Concomitant]
     Route: 030
  8. TRIFLUOPERAZINE HCL [Concomitant]
  9. CLOPIXOL DEPOT [Concomitant]

REACTIONS (11)
  - BLOOD UREA INCREASED [None]
  - HYPERTENSION [None]
  - HAEMOGLOBIN DECREASED [None]
  - MENTAL IMPAIRMENT [None]
  - HALLUCINATION [None]
  - BLADDER OBSTRUCTION [None]
  - RENAL FAILURE [None]
  - BLOOD CREATININE INCREASED [None]
  - PSYCHOTIC DISORDER [None]
  - RENAL IMPAIRMENT [None]
  - DELUSION [None]
